FAERS Safety Report 6547879-5 (Version None)
Quarter: 2010Q1

REPORT INFORMATION
  Report Type: 
  Country: None (occurrence: None)
  Receive Date: 20100124
  Receipt Date: 20091112
  Transmission Date: 20100710
  Serious: No
  Sender: FDA-Public Use
  Company Number: US-ALEXION-A200900980

PATIENT
  Sex: Male

DRUGS (5)
  1. SOLIRIS [Suspect]
     Dosage: UNK
  2. HEPARIN [Concomitant]
     Indication: ANTICOAGULANT THERAPY
     Dosage: 8-9 DAYS PRIOR TO TOOTH EXTRACTION
     Route: 058
     Dates: start: 20091101, end: 20091101
  3. OTHER ANALGESICS AND ANTIPYRETICS [Concomitant]
     Indication: PAIN
  4. ANTICOAGULANT [Suspect]
     Indication: ANTICOAGULANT THERAPY
     Dosage: UNK
     Route: 048
     Dates: start: 20090101, end: 20091101
  5. ANTICOAGULANT [Suspect]
     Dosage: UNK
     Route: 048
     Dates: start: 20091112

REACTIONS (1)
  - TOOTH EXTRACTION [None]
